FAERS Safety Report 5632580-2 (Version None)
Quarter: 2008Q1

REPORT INFORMATION
  Report Type: 
  Country: None (occurrence: None)
  Receive Date: 20080220
  Receipt Date: 20080219
  Transmission Date: 20080703
  Serious: Yes (Hospitalization)
  Sender: FDA-Public Use
  Company Number: US-GENENTECH-246923

PATIENT
  Sex: Female

DRUGS (10)
  1. BEVACIZUMAB [Suspect]
     Indication: BREAST CANCER
     Dosage: 680 MG, UNK
     Route: 042
     Dates: start: 20070122
  2. ADRIAMYCIN PFS [Suspect]
     Indication: BREAST CANCER
     Dosage: 104 MG, UNK
     Route: 042
     Dates: start: 20070122
  3. CYCLOPHOSPHAMIDE [Suspect]
     Indication: BREAST CANCER
     Dosage: 1040 MG, UNK
     Route: 042
     Dates: start: 20070122
  4. NEULASTA [Suspect]
     Indication: BREAST CANCER
     Dosage: 6 MG, UNK
     Route: 042
     Dates: start: 20070123
  5. TAXOL [Suspect]
     Indication: BREAST CANCER
     Dosage: 306 MG, UNK
     Route: 042
     Dates: start: 20070319
  6. COREG [Concomitant]
     Indication: DRUG USE FOR UNKNOWN INDICATION
     Dosage: 6.25 MG, UNK
     Route: 048
     Dates: start: 20070428
  7. ALDACTONE [Concomitant]
     Indication: DRUG USE FOR UNKNOWN INDICATION
     Route: 048
     Dates: start: 20070428
  8. DARVOCET [Concomitant]
     Indication: PAIN
     Route: 048
     Dates: start: 20070104
  9. POTASSIUM CHLORIDE [Concomitant]
     Indication: DRUG USE FOR UNKNOWN INDICATION
  10. BENZONATATE [Concomitant]
     Indication: DRUG USE FOR UNKNOWN INDICATION

REACTIONS (1)
  - PERICARDIAL EFFUSION [None]
